FAERS Safety Report 8586127-1 (Version None)
Quarter: 2012Q3

REPORT INFORMATION
  Report Type: 
  Country: None (occurrence: None)
  Receive Date: 20120810
  Receipt Date: 20120801
  Transmission Date: 20120928
  Serious: Yes (Hospitalization)
  Sender: FDA-Public Use
  Company Number: GB-PFIZER INC-2012189175

PATIENT
  Age: 69 Year
  Sex: Male
  Weight: 72 kg

DRUGS (10)
  1. ALTACITE PLUS [Concomitant]
     Indication: GASTROOESOPHAGEAL REFLUX DISEASE
     Dosage: 10 MG, 3X/DAY
     Route: 048
  2. NEDOCROMIL SODIUM [Concomitant]
     Indication: ASTHMA
     Dosage: 1 DF, UNK
     Route: 055
  3. GEMCITABINE HYDROCHLORIDE [Suspect]
     Indication: PANCREATIC CARCINOMA
     Dosage: 1800 MG, UNK
     Route: 042
     Dates: start: 20120118, end: 20120328
  4. SIMVASTATIN [Concomitant]
     Indication: BLOOD CHOLESTEROL
     Dosage: 20 MG, 1X/DAY
     Route: 048
  5. CREON [Concomitant]
     Indication: DYSPEPSIA
     Dosage: 40000 IU, AS NEEDED
     Route: 048
  6. OMEPRAZOLE [Concomitant]
     Dosage: 80 MG, 1X/DAY
     Route: 048
  7. PARACETAMOL [Concomitant]
     Indication: PAIN
     Dosage: 500 MG, AS NEEDED
     Route: 048
  8. CODEINE PHOSPHATE [Concomitant]
     Indication: PAIN
     Dosage: 30 MG, 3X/DAY
     Route: 048
  9. DEXAMETHASONE [Concomitant]
     Indication: PROPHYLAXIS OF NAUSEA AND VOMITING
     Dosage: 1 MG, 1X/DAY
     Route: 048
     Dates: start: 20120412
  10. HYOSCINE [Concomitant]
     Dosage: 10 MG, 1X/DAY
     Route: 048

REACTIONS (2)
  - PULMONARY EMBOLISM [None]
  - EMBOLISM [None]
